FAERS Safety Report 9684043 (Version 1)
Quarter: 2013Q4

REPORT INFORMATION
  Report Type: Spontaneous
  Country: US (occurrence: US)
  Receive Date: 20131112
  Receipt Date: 20131112
  Transmission Date: 20140711
  Serious: No
  Sender: FDA-Public Use
  Company Number: US-ENDO PHARMACEUTICALS INC.-DIAZ20120003

PATIENT
  Age: 57 Year
  Sex: Female
  Weight: 69.46 kg

DRUGS (1)
  1. DIAZEPAM 10MG TEVA [Suspect]
     Indication: PRODUCT USED FOR UNKNOWN INDICATION
     Dosage: 10 MG
     Route: 048
     Dates: start: 20120424

REACTIONS (2)
  - Euphoric mood [Recovering/Resolving]
  - Ear pain [Recovering/Resolving]
